FAERS Safety Report 22083759 (Version 1)
Quarter: 2023Q1

REPORT INFORMATION
  Report Type: Spontaneous
  Country: SE (occurrence: SE)
  Receive Date: 20230310
  Receipt Date: 20230310
  Transmission Date: 20230418
  Serious: Yes (Other)
  Sender: FDA-Public Use
  Company Number: None

PATIENT
  Sex: Female
  Weight: 62 kg

DRUGS (3)
  1. MIRENA [Suspect]
     Active Substance: LEVONORGESTREL
     Indication: Contraception
     Dosage: 20?G/DAY
     Route: 015
     Dates: start: 20200514, end: 20210927
  2. NIFEREX [IRON POLYSACCHARIDE COMPLEX] [Concomitant]
     Dosage: 100 MG
     Route: 048
     Dates: start: 20210927
  3. PROVERA [MEDROXYPROGESTERONE] [Concomitant]
     Dosage: 10 MG
     Route: 048
     Dates: start: 20210125, end: 20211101

REACTIONS (4)
  - Menstruation irregular [Unknown]
  - Haemoglobin decreased [Unknown]
  - Heavy menstrual bleeding [Unknown]
  - Device expulsion [Recovered/Resolved]

NARRATIVE: CASE EVENT DATE: 20200101
